FAERS Safety Report 6025422-7 (Version None)
Quarter: 2008Q4

REPORT INFORMATION
  Report Type: 
  Country: None (occurrence: None)
  Receive Date: 20081229
  Receipt Date: 20081229
  Transmission Date: 20090506
  Serious: No
  Sender: FDA-Public Use
  Company Number: None

PATIENT
  Sex: Male
  Weight: 79.3795 kg

DRUGS (1)
  1. METHYLPREDNISOLONE 4MG TAB [Suspect]
     Indication: BRONCHITIS
     Dosage: 21 TABLET 6-DAY ^DOSE PAK^ 21 TABLET 6-DAY ^D PO
     Route: 048
     Dates: start: 20081218, end: 20081227

REACTIONS (2)
  - BRONCHITIS [None]
  - URTICARIA [None]
